FAERS Safety Report 7263922-2 (Version None)
Quarter: 2011Q1

REPORT INFORMATION
  Report Type: 
  Country: None (occurrence: None)
  Receive Date: 20110130
  Receipt Date: 20101208
  Transmission Date: 20110831
  Serious: No
  Sender: FDA-Public Use
  Company Number: US-ABBOTT-10P-163-0690361-00

PATIENT
  Age: 45 Year
  Sex: Female

DRUGS (3)
  1. PAIN KILLERS [Concomitant]
     Indication: PRODUCT USED FOR UNKNOWN INDICATION
  2. MEDICATION FOR STOMACH [Concomitant]
     Indication: PRODUCT USED FOR UNKNOWN INDICATION
  3. HUMIRA [Suspect]
     Indication: RHEUMATOID ARTHRITIS
     Dosage: TWO PENS A MONTH
     Dates: start: 20101101

REACTIONS (1)
  - INJECTION SITE ERYTHEMA [None]
